FAERS Safety Report 7170505-1 (Version None)
Quarter: 2010Q4

REPORT INFORMATION
  Report Type: 
  Country: None (occurrence: None)
  Receive Date: 20101217
  Receipt Date: 20101206
  Transmission Date: 20110411
  Serious: Yes (Other)
  Sender: FDA-Public Use
  Company Number: PHHY2010NL82825

PATIENT
  Sex: Male

DRUGS (1)
  1. ZOMETA [Suspect]
     Indication: PROSTATE CANCER
     Dosage: 4 MG/5 ML
     Route: 042
     Dates: start: 20101012

REACTIONS (2)
  - GENERAL PHYSICAL HEALTH DETERIORATION [None]
  - PAIN [None]
